FAERS Safety Report 5239271-0 (Version None)
Quarter: 2007Q1

REPORT INFORMATION
  Report Type: 
  Country: None (occurrence: None)
  Receive Date: 20061208
  Receipt Date: 20051003
  Transmission Date: 20070707
  Serious: Yes (Other)
  Sender: FDA-Public Use
  Company Number: 2005UW12550

PATIENT
  Age: 55 Year
  Sex: Female
  Weight: 77.11 kg

DRUGS (10)
  1. CRESTOR [Suspect]
     Indication: BLOOD CHOLESTEROL INCREASED
     Dosage: 20 MG PO
     Route: 048
     Dates: start: 20040201, end: 20050629
  2. TOPROL-XL [Concomitant]
  3. EFFEXOR [Concomitant]
  4. SYNTHROID [Concomitant]
  5. RANITIDINE [Concomitant]
  6. NEURONTIN [Concomitant]
  7. DIFLUCAN [Concomitant]
  8. DARVOCET-N 100 [Concomitant]
  9. ATIVAN [Concomitant]
  10. SINGULAIR [Concomitant]

REACTIONS (6)
  - FATIGUE [None]
  - GAIT DISTURBANCE [None]
  - LABORATORY TEST ABNORMAL [None]
  - MUSCULAR WEAKNESS [None]
  - MYALGIA [None]
  - VISION BLURRED [None]
